FAERS Safety Report 7895222 (Version 11)
Quarter: 2013Q1

REPORT INFORMATION
  Report Type: Spontaneous
  Country: US (occurrence: US)
  Receive Date: 20110412
  Receipt Date: 20130102
  Transmission Date: 20140127
  Serious: Yes (Hospitalization, Congenital Anomaly, Other)
  Sender: FDA-Public Use
  Company Number: US-PFIZER INC-2011077307

PATIENT
  Sex: Male

DRUGS (36)
  1. ZOLOFT [Suspect]
     Indication: DEPRESSION
     Dosage: 100 MG, 1X/DAY, AT BED TIME
     Route: 064
  2. ZOLOFT [Suspect]
     Dosage: 200 MG, 1X/DAY
     Route: 064
     Dates: start: 20011127
  3. ZOLOFT [Suspect]
     Dosage: 50 MG, UNK
     Route: 064
  4. SEROQUEL [Concomitant]
     Indication: HALLUCINATION
     Dosage: 100 MG, 1X/DAY, AT BED TIME
     Route: 064
  5. SEROQUEL [Concomitant]
     Dosage: 300 MG, UNK
     Route: 064
     Dates: start: 20020201
  6. REVIA [Concomitant]
     Dosage: 25 MG, 2X/DAY
     Route: 064
     Dates: start: 20011030, end: 20020108
  7. HYDROCODONE [Concomitant]
     Indication: ARTHRITIS
     Dosage: 5/500 TWICE A DAY FOR ONE MONTH
     Route: 064
  8. PRENATAL VITAMINS [Concomitant]
     Dosage: ONCE A DAY
     Route: 064
  9. PRENATAL VITAMINS [Concomitant]
     Dosage: UNK
     Route: 064
     Dates: start: 20020328
  10. BENADRYL [Concomitant]
     Dosage: 25 MG, EVERY 4 HRS
     Route: 064
  11. BENADRYL [Concomitant]
     Dosage: UNK
     Route: 064
     Dates: start: 20020724
  12. NICODERM [Concomitant]
     Dosage: 21 MG PER HOUR PATCH, ONE PATCH ONE DAY
     Route: 064
  13. SOLU-MEDROL [Concomitant]
     Dosage: 125 MG, EVERY 6 HOURS, EVERY 8 HOURS
     Route: 064
  14. ALBUTEROL [Concomitant]
     Dosage: UNIT DOSE HAND HELD NEBULIZER EVERY 4 HOURS WHILE AWAKE
     Route: 064
  15. ALBUTEROL [Concomitant]
     Dosage: 90 UG, UNK
     Route: 064
     Dates: start: 20020201
  16. ATROVENT [Concomitant]
     Dosage: UNIT DOSE HAND HELD NEBULIZER EVERY 4 HOURS
     Route: 064
  17. ATROVENT [Concomitant]
     Dosage: UNK
     Route: 064
     Dates: start: 20020702
  18. CEFTIN [Concomitant]
     Dosage: 250 MG, 2X/DAY WITH FOOD
     Route: 064
  19. CEFTIN [Concomitant]
     Dosage: UNK
     Route: 064
     Dates: start: 20020628
  20. AEROBID-M [Concomitant]
     Dosage: UNK
     Route: 064
     Dates: start: 20020111
  21. FLOVENT [Concomitant]
     Indication: ASTHMA
     Dosage: 110 UG, UNK
     Route: 064
     Dates: start: 20020114
  22. HYDROCODONE W/ACETAMINOPHEN [Concomitant]
     Dosage: 5/500
     Route: 064
     Dates: start: 20020114
  23. BIAXIN XL [Concomitant]
     Dosage: 500 MG, UNK
     Route: 064
     Dates: start: 20020119
  24. SEREVENT [Concomitant]
     Dosage: 21 UG, UNK
     Route: 064
     Dates: start: 20020201
  25. COMBIVENT [Concomitant]
     Dosage: UNK
     Route: 064
     Dates: start: 20020201
  26. VANCERIL [Concomitant]
     Dosage: UNK
     Route: 064
     Dates: start: 20020305
  27. AMOXICILLIN [Concomitant]
     Dosage: 500 MG, UNK
     Route: 064
     Dates: start: 20020309
  28. HYDROXYZINE [Concomitant]
     Dosage: 25 MG, UNK
     Route: 064
     Dates: start: 20020407
  29. MONTELUKAST [Concomitant]
     Dosage: 10 MG, UNK
     Route: 064
     Dates: start: 20020422
  30. NICOTINE [Concomitant]
     Dosage: 14 MG FOR 24 HOUR, UNK
     Route: 064
     Dates: start: 20020424
  31. METHYLPREDNISONE [Concomitant]
     Dosage: 4 MG, UNK
     Route: 064
     Dates: start: 20020626
  32. ADVAIR [Concomitant]
     Dosage: 5/500
     Route: 064
     Dates: start: 20020701
  33. PREDNISONE [Concomitant]
     Dosage: 10 MG, UNK
     Route: 064
     Dates: start: 20020119
  34. FLEXERIL [Concomitant]
     Dosage: 10 MG, UNK
     Route: 064
  35. COLACE [Concomitant]
     Dosage: 100 MG, UNK
     Route: 064
  36. ZITHROMAX [Concomitant]
     Route: 064

REACTIONS (9)
  - Maternal exposure timing unspecified [Unknown]
  - Talipes [Unknown]
  - Convulsion neonatal [Recovered/Resolved]
  - Transverse sinus thrombosis [Recovering/Resolving]
  - Sepsis neonatal [Unknown]
  - Retinal haemorrhage [Unknown]
  - Vitreous haemorrhage [Unknown]
  - Enterococcal bacteraemia [Unknown]
  - Congenital anomaly [Unknown]
